FAERS Safety Report 17352411 (Version 2)
Quarter: 2020Q2

REPORT INFORMATION
  Report Type: Report from Study
  Country: None (occurrence: US)
  Receive Date: 20200130
  Receipt Date: 20200424
  Transmission Date: 20200713
  Serious: Yes (Other)
  Sender: FDA-Public Use
  Company Number: US-ABBVIE-20K-163-3254998-00

PATIENT
  Age: 65 Year
  Sex: Female

DRUGS (2)
  1. HUMIRA [Suspect]
     Active Substance: ADALIMUMAB
     Route: 058
  2. HUMIRA [Suspect]
     Active Substance: ADALIMUMAB
     Indication: PSORIATIC ARTHROPATHY
     Route: 058
     Dates: start: 20191021

REACTIONS (15)
  - Vitamin D decreased [Unknown]
  - Loss of personal independence in daily activities [Not Recovered/Not Resolved]
  - Rhinorrhoea [Recovered/Resolved]
  - Joint stiffness [Unknown]
  - Anxiety [Not Recovered/Not Resolved]
  - Pollakiuria [Unknown]
  - Precancerous cells present [Unknown]
  - Fatigue [Unknown]
  - Pain in extremity [Not Recovered/Not Resolved]
  - Arthralgia [Not Recovered/Not Resolved]
  - Psoriasis [Recovering/Resolving]
  - Stress [Unknown]
  - Limb discomfort [Not Recovered/Not Resolved]
  - Feeling cold [Unknown]
  - Musculoskeletal discomfort [Not Recovered/Not Resolved]

NARRATIVE: CASE EVENT DATE: 2019
